FAERS Safety Report 9242674 (Version 1)
Quarter: 2013Q2

REPORT INFORMATION
  Report Type: Spontaneous
  Country: ES (occurrence: ES)
  Receive Date: 20130419
  Receipt Date: 20130419
  Transmission Date: 20140414
  Serious: Yes (Hospitalization)
  Sender: FDA-Public Use
  Company Number: ES-GLAXOSMITHKLINE-B0885147A

PATIENT
  Age: 49 Year
  Sex: Female
  Weight: 57 kg

DRUGS (4)
  1. TYVERB [Suspect]
     Indication: BREAST CANCER
     Dosage: 1250MG CYCLIC
     Route: 048
     Dates: start: 201211, end: 20130103
  2. CAPECITABINE [Suspect]
     Indication: BREAST CANCER
     Dosage: 3G CYCLIC
     Route: 042
     Dates: start: 201211, end: 20130103
  3. FORTECORTIN [Suspect]
     Indication: PROPHYLAXIS
     Dosage: 6MG PER DAY
     Route: 048
     Dates: start: 201212, end: 20130114
  4. OMEPRAZOLE [Concomitant]
     Dosage: 20MG PER DAY
     Route: 048
     Dates: start: 20121205

REACTIONS (3)
  - Mucosal inflammation [Recovering/Resolving]
  - Diarrhoea [Recovered/Resolved]
  - Coagulopathy [Recovered/Resolved]
